FAERS Safety Report 4405628-0 (Version None)
Quarter: 2004Q3

REPORT INFORMATION
  Report Type: 
  Country: None (occurrence: None)
  Receive Date: 20040723
  Receipt Date: 20031022
  Transmission Date: 20050211
  Serious: No
  Sender: FDA-Public Use
  Company Number: US-GLAXOSMITHKLINE-A0431182A

PATIENT
  Age: 57 Year
  Sex: Male

DRUGS (4)
  1. AVANDIA [Suspect]
     Route: 048
  2. CARDIZEM [Concomitant]
  3. GLUCOVANCE [Concomitant]
  4. CHOLESTEROL REDUCING AGENT NAME NOT KNOWN [Concomitant]

REACTIONS (1)
  - OEDEMA PERIPHERAL [None]
